FAERS Safety Report 17229085 (Version 1)
Quarter: 2020Q1

REPORT INFORMATION
  Report Type: Spontaneous
  Country: DE (occurrence: DE)
  Receive Date: 20200103
  Receipt Date: 20200103
  Transmission Date: 20200409
  Serious: Yes (Other)
  Sender: FDA-Public Use
  Company Number: NVSC2019DE084552

PATIENT
  Sex: Male

DRUGS (1)
  1. BRINZOLAMID - 1 A PHARMA 10 MG/ML AUGENTROPFENSUSPENSION [Suspect]
     Active Substance: BRINZOLAMIDE
     Indication: PRODUCT USED FOR UNKNOWN INDICATION
     Route: 065

REACTIONS (1)
  - Eye haemorrhage [Unknown]
